FAERS Safety Report 17324947 (Version 1)
Quarter: 2020Q1

REPORT INFORMATION
  Report Type: Spontaneous
  Country: GB (occurrence: GB)
  Receive Date: 20200127
  Receipt Date: 20200127
  Transmission Date: 20200409
  Serious: Yes (Other)
  Sender: FDA-Public Use
  Company Number: GB-APOTEX-2020AP006925

PATIENT
  Sex: Female

DRUGS (1)
  1. SEROXAT [Suspect]
     Active Substance: PAROXETINE HYDROCHLORIDE
     Indication: PRODUCT USED FOR UNKNOWN INDICATION
     Dosage: 20 MG
     Route: 065

REACTIONS (10)
  - Personality change [Unknown]
  - Gambling disorder [Unknown]
  - Headache [Unknown]
  - Emotional poverty [Unknown]
  - Drug dependence [Unknown]
  - Dizziness [Unknown]
  - Tremor [Unknown]
  - Adverse drug reaction [Unknown]
  - Vomiting [Unknown]
  - Nausea [Unknown]
